FAERS Safety Report 16490162 (Version 1)
Quarter: 2019Q2

REPORT INFORMATION
  Report Type: Spontaneous
  Country: US (occurrence: US)
  Receive Date: 20190628
  Receipt Date: 20190628
  Transmission Date: 20190711
  Serious: Yes (Other)
  Sender: FDA-Public Use
  Company Number: US-BRISTOL-MYERS SQUIBB COMPANY-BMS-2019-061819

PATIENT
  Age: 4 Year

DRUGS (1)
  1. ELIQUIS [Suspect]
     Active Substance: APIXABAN
     Indication: CEREBROVASCULAR ACCIDENT PROPHYLAXIS
     Dosage: UNAVAILABLE
     Route: 065

REACTIONS (5)
  - Epistaxis [Unknown]
  - Intentional product use issue [Unknown]
  - Haemoptysis [Unknown]
  - Haemoglobin decreased [Unknown]
  - Atrial fibrillation [Unknown]
